FAERS Safety Report 7518956-7 (Version None)
Quarter: 2011Q2

REPORT INFORMATION
  Report Type: 
  Country: None (occurrence: None)
  Receive Date: 20110602
  Receipt Date: 20110526
  Transmission Date: 20111010
  Serious: Yes (Hospitalization)
  Sender: FDA-Public Use
  Company Number: TR-US-EMD SERONO, INC.-7061833

PATIENT
  Sex: Female
  Weight: 58 kg

DRUGS (4)
  1. REBIF [Suspect]
     Indication: MULTIPLE SCLEROSIS
     Route: 058
     Dates: start: 20110328, end: 20110401
  2. MINOSET [Concomitant]
     Indication: PAIN
     Route: 048
     Dates: start: 20110328, end: 20110401
  3. REBIF [Suspect]
     Dates: start: 20091001, end: 20100201
  4. CORTISONE ACETATE [Suspect]
     Dates: end: 20110301

REACTIONS (1)
  - PSYCHOTIC DISORDER [None]
